FAERS Safety Report 9520719 (Version 1)
Quarter: 2013Q3

REPORT INFORMATION
  Report Type: Spontaneous
  Country: GB (occurrence: None)
  Receive Date: 20130911
  Receipt Date: 20130911
  Transmission Date: 20140515
  Serious: Yes (Life-Threatening)
  Sender: FDA-Public Use
  Company Number: AUR-APL-2013-07425

PATIENT
  Age: 17 Year
  Sex: Male

DRUGS (3)
  1. RISPERIDONE (RISPERIDONE) [Suspect]
     Indication: HYPOMANIA
     Route: 048
     Dates: start: 20130307, end: 20130802
  2. FLUOXETINE (FLUOXETINE) [Concomitant]
  3. OMEPRAZOLE (OMEPRAZOLE) [Concomitant]

REACTIONS (6)
  - Cardiomegaly [None]
  - Cardiomyopathy [None]
  - Migraine [None]
  - Aortic dilatation [None]
  - Atrial septal defect [None]
  - Left ventricular hypertrophy [None]
